FAERS Safety Report 14910290 (Version 8)
Quarter: 2018Q4

REPORT INFORMATION
  Report Type: Spontaneous
  Country: CA (occurrence: CA)
  Receive Date: 20180517
  Receipt Date: 20181109
  Transmission Date: 20190204
  Serious: Yes (Life-Threatening, Hospitalization)
  Sender: FDA-Public Use
  Company Number: CA-CELGENEUS-CAN-20180505157

PATIENT
  Age: 81 Year
  Sex: Female

DRUGS (17)
  1. VENETOCLAX. [Concomitant]
     Active Substance: VENETOCLAX
     Indication: ACUTE MYELOID LEUKAEMIA
     Route: 065
  2. FUROSEMIDE. [Concomitant]
     Active Substance: FUROSEMIDE
     Indication: PROPHYLAXIS
     Dosage: 20 MILLIGRAM
     Route: 048
     Dates: start: 20180323
  3. DOCUSATE SODIUM. [Concomitant]
     Active Substance: DOCUSATE SODIUM
     Indication: CONSTIPATION
     Dosage: 200 MILLIGRAM
     Route: 048
     Dates: start: 20180409
  4. VIDAZA [Suspect]
     Active Substance: AZACITIDINE
     Indication: ACUTE MYELOID LEUKAEMIA
     Dosage: 75 MILLIGRAM/SQ. METER
     Route: 058
     Dates: start: 20180409, end: 20180415
  5. CEFTAZIDIME. [Concomitant]
     Active Substance: CEFTAZIDIME
     Indication: CELLULITIS
     Dosage: 2 GRAM
     Route: 041
     Dates: start: 20180426
  6. SENNOSIDE A+B [Concomitant]
     Active Substance: SENNOSIDES A AND B
     Indication: CONSTIPATION
     Dosage: 17.2 MILLIGRAM
     Route: 048
     Dates: start: 20180409
  7. LEVOFLOXACIN. [Concomitant]
     Active Substance: LEVOFLOXACIN
     Indication: INFECTION PROPHYLAXIS
     Dosage: 500 MILLIGRAM
     Route: 048
     Dates: start: 20180409
  8. ONDANSETRON [Concomitant]
     Active Substance: ONDANSETRON
     Indication: NAUSEA
     Dosage: 8 MILLIGRAM
     Route: 048
     Dates: start: 20180412
  9. CEFTRIAXONE. [Concomitant]
     Active Substance: CEFTRIAXONE
     Indication: CELLULITIS
     Dosage: 2 GRAM
     Route: 048
     Dates: start: 20180427, end: 20180509
  10. ONDANSETRON [Concomitant]
     Active Substance: ONDANSETRON
     Indication: VOMITING
  11. METOPROLOL. [Concomitant]
     Active Substance: METOPROLOL
     Dosage: 200 MILLIGRAM
     Route: 048
     Dates: start: 20180613
  12. VIDAZA [Suspect]
     Active Substance: AZACITIDINE
     Dosage: 75 MILLIGRAM/SQ. METER
     Route: 058
     Dates: start: 20180529
  13. MACROGOL [Concomitant]
     Active Substance: POLYETHYLENE GLYCOLS
     Indication: CONSTIPATION
     Dosage: 51 GRAM
     Route: 048
     Dates: start: 20180409
  14. METOPROLOL. [Concomitant]
     Active Substance: METOPROLOL
     Indication: ARRHYTHMIA PROPHYLAXIS
     Dosage: 150 MILLIGRAM
     Route: 048
     Dates: start: 20180611, end: 20180613
  15. ALLOPURINOL. [Concomitant]
     Active Substance: ALLOPURINOL
     Indication: PROPHYLAXIS
     Dosage: 300 MILLIGRAM
     Route: 048
     Dates: start: 20180405
  16. METOPROLOL. [Concomitant]
     Active Substance: METOPROLOL
     Indication: ATRIAL FIBRILLATION
     Dosage: 100 MILLIGRAM
     Route: 048
     Dates: start: 20180508
  17. OENOTHERA BIENNIS OIL [Concomitant]
     Indication: ERYTHEMA
     Dosage: 1 CAPSULE
     Route: 061
     Dates: start: 20180409

REACTIONS (1)
  - Pneumonia [Recovered/Resolved]

NARRATIVE: CASE EVENT DATE: 20180509
